FAERS Safety Report 10034906 (Version 1)
Quarter: 2014Q1

REPORT INFORMATION
  Report Type: Spontaneous
  Country: US (occurrence: None)
  Receive Date: 20140306
  Receipt Date: 20140306
  Transmission Date: 20141002
  Serious: Yes (Other)
  Sender: FDA-Public Use
  Company Number: 163-21880-13103075

PATIENT
  Age: 62 Year
  Sex: Female
  Weight: 60 kg

DRUGS (1)
  1. REVLIMID (LENALIDOMIDE) (10 MILLIGRAM, CAPSULES) [Suspect]
     Indication: MYELODYSPLASTIC SYNDROME
     Route: 048
     Dates: start: 20131010

REACTIONS (12)
  - Sinus disorder [None]
  - Gingival erythema [None]
  - Gingival pain [None]
  - Contusion [None]
  - Platelet count decreased [None]
  - Muscle spasms [None]
  - Gingival swelling [None]
  - Oedema peripheral [None]
  - Rash [None]
  - Disturbance in attention [None]
  - Constipation [None]
  - Diarrhoea [None]
